FAERS Safety Report 7105352-X (Version None)
Quarter: 2010Q4

REPORT INFORMATION
  Report Type: 
  Country: None (occurrence: None)
  Receive Date: 20101116
  Receipt Date: 20101106
  Transmission Date: 20110411
  Serious: Yes (Hospitalization, Other)
  Sender: FDA-Public Use
  Company Number: US-AMGEN-USASP2010002052

PATIENT

DRUGS (12)
  1. ENBREL [Suspect]
     Indication: PSORIASIS
     Dosage: 50 MG, 2 TIMES/WK
     Route: 058
     Dates: start: 20100507, end: 20101026
  2. ENBREL [Suspect]
  3. KENALOG [Concomitant]
     Dosage: 60 MG, UNK
  4. TRIAMCINOLONE [Concomitant]
  5. SALIKERA [Concomitant]
  6. OLUX [Concomitant]
  7. METHOTREXATE [Concomitant]
  8. VECTICAL [Concomitant]
  9. GLYBURIDE [Concomitant]
  10. GLUCOVANCE [Concomitant]
  11. VYTORIN [Concomitant]
  12. TACLONEX [Concomitant]

REACTIONS (5)
  - BLOOD DISORDER [None]
  - CONTUSION [None]
  - DIABETES MELLITUS [None]
  - PLATELET COUNT DECREASED [None]
  - VASCULAR RUPTURE [None]
